FAERS Safety Report 5671877-7 (Version None)
Quarter: 2008Q1

REPORT INFORMATION
  Report Type: 
  Country: None (occurrence: None)
  Receive Date: 20080317
  Receipt Date: 20080317
  Transmission Date: 20080703
  Serious: Yes (Life-Threatening, Hospitalization)
  Sender: FDA-Public Use
  Company Number: None

PATIENT
  Age: 12 Year
  Sex: Male
  Weight: 58.9676 kg

DRUGS (2)
  1. AMITRIPTYLINE HCL [Suspect]
     Indication: HEADACHE
     Dosage: ONE 50 MG 1X DAILY PO
     Route: 048
     Dates: start: 20080219, end: 20080312
  2. FIORICET [Suspect]
     Indication: HEADACHE
     Dosage: 2 TABLETS EVERY 4 HOURS PO
     Route: 048
     Dates: start: 20080311, end: 20080312

REACTIONS (10)
  - ABNORMAL BEHAVIOUR [None]
  - AGGRESSION [None]
  - AMNESIA [None]
  - ANGER [None]
  - ENERGY INCREASED [None]
  - HALLUCINATION [None]
  - HOMICIDAL IDEATION [None]
  - IRRITABILITY [None]
  - NO THERAPEUTIC RESPONSE [None]
  - SELF INJURIOUS BEHAVIOUR [None]
